FAERS Safety Report 7109288-X (Version None)
Quarter: 2010Q4

REPORT INFORMATION
  Report Type: 
  Country: None (occurrence: None)
  Receive Date: 20101117
  Receipt Date: 20101008
  Transmission Date: 20110411
  Serious: Yes (Hospitalization)
  Sender: FDA-Public Use
  Company Number: FR-AMGEN-FRASP2010000053

PATIENT

DRUGS (5)
  1. ENBREL [Suspect]
     Indication: RHEUMATOID ARTHRITIS
     Route: 064
     Dates: start: 20080901, end: 20081223
  2. OGAST [Concomitant]
     Indication: PROPHYLAXIS
     Route: 048
     Dates: start: 20080101, end: 20090101
  3. DOLIPRANE [Concomitant]
     Indication: RHEUMATOID ARTHRITIS
     Dosage: 1 TO 3 G TOTAL DAILY
     Route: 064
  4. METHOTREXATE [Concomitant]
     Indication: RHEUMATOID ARTHRITIS
     Dosage: 10 MG TOTAL WEEKLY
     Route: 064
     Dates: start: 20080301, end: 20081223
  5. CORTANCYL [Concomitant]
     Indication: RHEUMATOID ARTHRITIS
     Route: 064
     Dates: start: 20060101

REACTIONS (1)
  - NONSPECIFIC REACTION [None]
